FAERS Safety Report 8997649 (Version 1)
Quarter: 2013Q1

REPORT INFORMATION
  Report Type: Spontaneous
  Country: GB (occurrence: GB)
  Receive Date: 20130104
  Receipt Date: 20130104
  Transmission Date: 20140127
  Serious: Yes (Other)
  Sender: FDA-Public Use
  Company Number: PHHY2013GB001013

PATIENT
  Age: 26 Year
  Sex: 0
  Weight: 66.22 kg

DRUGS (3)
  1. METHADONE [Suspect]
     Indication: VOMITING
     Dosage: 100 ML, UNK
     Route: 048
     Dates: start: 20121217, end: 20121217
  2. DIAZEPAM [Suspect]
     Indication: VOMITING
     Dosage: 30 MG, UNK
     Route: 048
     Dates: start: 20121217, end: 20121217
  3. ZOLPIDEM TARTRATE [Concomitant]

REACTIONS (5)
  - Aggression [Not Recovered/Not Resolved]
  - Incoherent [Not Recovered/Not Resolved]
  - Dysstasia [Not Recovered/Not Resolved]
  - Confusional state [Not Recovered/Not Resolved]
  - Fatigue [Not Recovered/Not Resolved]
